FAERS Safety Report 6550706-3 (Version None)
Quarter: 2010Q1

REPORT INFORMATION
  Report Type: 
  Country: None (occurrence: None)
  Receive Date: 20100125
  Receipt Date: 20091217
  Transmission Date: 20100710
  Serious: No
  Sender: FDA-Public Use
  Company Number: US-TYCO HEALTHCARE/MALLINCKRODT-T200902341

PATIENT
  Sex: Male

DRUGS (1)
  1. OPTIRAY 350 [Suspect]
     Dosage: 32 ML, SINGLE
     Dates: start: 20091216, end: 20091216

REACTIONS (2)
  - RASH [None]
  - VOMITING [None]
